FAERS Safety Report 10242144 (Version 1)
Quarter: 2014Q2

REPORT INFORMATION
  Report Type: Report from Study
  Country: US (occurrence: US)
  Receive Date: 20140617
  Receipt Date: 20140617
  Transmission Date: 20141212
  Serious: Yes (Hospitalization)
  Sender: FDA-Public Use
  Company Number: US-ABBVIE-14P-163-1245841-00

PATIENT
  Age: 69 Year
  Sex: Male

DRUGS (1)
  1. HUMIRA [Suspect]
     Indication: PSORIASIS
     Route: 058
     Dates: start: 20131106

REACTIONS (2)
  - Coronary artery occlusion [Not Recovered/Not Resolved]
  - Myocardial infarction [Not Recovered/Not Resolved]
